FAERS Safety Report 7354230-X (Version None)
Quarter: 2011Q1

REPORT INFORMATION
  Report Type: 
  Country: None (occurrence: None)
  Receive Date: 20110316
  Receipt Date: 20110307
  Transmission Date: 20110831
  Serious: No
  Sender: FDA-Public Use
  Company Number: US-BIOGENIDEC-2011BI008754

PATIENT
  Sex: Female

DRUGS (2)
  1. TYSABRI [Suspect]
     Indication: MULTIPLE SCLEROSIS
     Route: 042
     Dates: start: 20090401
  2. HYDROCODONE BITARTRATE [Concomitant]
     Indication: MIGRAINE

REACTIONS (8)
  - EAR PAIN [None]
  - TINNITUS [None]
  - TYMPANIC MEMBRANE PERFORATION [None]
  - EAR DISCOMFORT [None]
  - OTORRHOEA [None]
  - OSTEOARTHRITIS [None]
  - MUSCLE DISORDER [None]
  - EAR INFECTION [None]
